FAERS Safety Report 23170043 (Version 1)
Quarter: 2023Q4

REPORT INFORMATION
  Report Type: Spontaneous
  Country: GB (occurrence: GB)
  Receive Date: 20231110
  Receipt Date: 20231110
  Transmission Date: 20240110
  Serious: Yes (Death, Other)
  Sender: FDA-Public Use
  Company Number: GB-EMA-DD-20190514-jain_h1-172903

PATIENT
  Age: 36 Year
  Sex: Male

DRUGS (3)
  1. OXALIPLATIN [Suspect]
     Active Substance: OXALIPLATIN
     Indication: Colorectal cancer metastatic
     Dosage: 250 MILLIGRAM
     Route: 042
     Dates: start: 20070806, end: 20070806
  2. CAPECITABINE [Suspect]
     Active Substance: CAPECITABINE
     Indication: Colorectal cancer metastatic
     Dosage: 1900 MILLIGRAM, TWO TIMES A DAY
     Route: 048
     Dates: start: 20070806, end: 20070814
  3. PAZOPANIB [Suspect]
     Active Substance: PAZOPANIB
     Indication: Colorectal cancer metastatic
     Dosage: 800 MILLIGRAM
     Route: 048
     Dates: start: 20070806, end: 20070814

REACTIONS (1)
  - Cardiac arrest [Fatal]

NARRATIVE: CASE EVENT DATE: 20070815
